FAERS Safety Report 21493211 (Version 1)
Quarter: 2022Q4

REPORT INFORMATION
  Report Type: Spontaneous
  Country: US (occurrence: US)
  Receive Date: 20221021
  Receipt Date: 20221021
  Transmission Date: 20230113
  Serious: No
  Sender: FDA-Public Use
  Company Number: US-ALLERGAN-2203723US

PATIENT
  Sex: Male

DRUGS (3)
  1. COMBIGAN [Suspect]
     Active Substance: BRIMONIDINE TARTRATE\TIMOLOL MALEATE
     Indication: Glaucoma
     Dosage: UNK
  2. LATANOPROST [Suspect]
     Active Substance: LATANOPROST
     Indication: Glaucoma
  3. VYZULTA [Concomitant]
     Active Substance: LATANOPROSTENE BUNOD
     Indication: Glaucoma

REACTIONS (2)
  - Eye irritation [Recovered/Resolved]
  - Product lot number issue [Unknown]
